FAERS Safety Report 8491724-8 (Version None)
Quarter: 2012Q3

REPORT INFORMATION
  Report Type: 
  Country: None (occurrence: None)
  Receive Date: 20120706
  Receipt Date: 20120702
  Transmission Date: 20120928
  Serious: Yes (Other)
  Sender: FDA-Public Use
  Company Number: IN-PFIZER INC-2012160056

PATIENT
  Sex: Female

DRUGS (1)
  1. LYRICA [Suspect]
     Indication: NEURITIS
     Dosage: 75 MG, UNK
     Route: 048
     Dates: start: 20080101

REACTIONS (4)
  - READING DISORDER [None]
  - NEURITIS [None]
  - VISUAL ACUITY REDUCED [None]
  - MALIGNANT NEOPLASM OF EYE [None]
